FAERS Safety Report 7194393-2 (Version None)
Quarter: 2010Q4

REPORT INFORMATION
  Report Type: 
  Country: None (occurrence: None)
  Receive Date: 20101223
  Receipt Date: 20101215
  Transmission Date: 20110411
  Serious: Yes (Hospitalization)
  Sender: FDA-Public Use
  Company Number: US-ELI_LILLY_AND_COMPANY-US201012004366

PATIENT
  Sex: Male

DRUGS (2)
  1. HUMULIN 50/50 [Suspect]
     Dosage: 25 U, EACH MORNING
     Dates: end: 20101215
  2. HUMULIN 50/50 [Suspect]
     Dosage: 16 U, OTHER
     Dates: end: 20101215

REACTIONS (5)
  - DRUG DISPENSING ERROR [None]
  - EXPIRED DRUG ADMINISTERED [None]
  - FALL [None]
  - NERVOUS SYSTEM DISORDER [None]
  - SUBDURAL HAEMATOMA [None]
